FAERS Safety Report 8251630-0 (Version None)
Quarter: 2012Q2

REPORT INFORMATION
  Report Type: 
  Country: None (occurrence: None)
  Receive Date: 20120402
  Receipt Date: 20120103
  Transmission Date: 20120825
  Serious: No
  Sender: FDA-Public Use
  Company Number: US-ABBOTT-12P-163-0888416-00

PATIENT
  Sex: Male
  Weight: 145.28 kg

DRUGS (1)
  1. ANDROGEL [Suspect]
     Indication: BLOOD TESTOSTERONE DECREASED
     Route: 061
     Dates: start: 20111220, end: 20111230

REACTIONS (6)
  - FLUSHING [None]
  - FLUID RETENTION [None]
  - ANXIETY [None]
  - DIZZINESS [None]
  - INSOMNIA [None]
  - FEELING ABNORMAL [None]
